FAERS Safety Report 18009658 (Version 1)
Quarter: 2020Q3

REPORT INFORMATION
  Report Type: Spontaneous
  Country: CH (occurrence: CH)
  Receive Date: 20200710
  Receipt Date: 20200710
  Transmission Date: 20201103
  Serious: Yes (Hospitalization, Other)
  Sender: FDA-Public Use
  Company Number: CH-PFIZER INC-2020264243

PATIENT
  Age: 49 Year
  Sex: Female
  Weight: 60 kg

DRUGS (6)
  1. ALDACTONE [Suspect]
     Active Substance: SPIRONOLACTONE
     Dosage: 250 MG, DAILY
     Route: 048
     Dates: start: 20200615
  2. XARELTO [Suspect]
     Active Substance: RIVAROXABAN
     Indication: PORTAL VEIN THROMBOSIS
     Dosage: 20 MG, DAILY
     Route: 048
  3. ALDACTONE [Suspect]
     Active Substance: SPIRONOLACTONE
     Indication: ASCITES
     Dosage: UNK
     Dates: end: 20200614
  4. PANTOPRAZOL MEPHA [Concomitant]
     Active Substance: PANTOPRAZOLE SODIUM
  5. XARELTO [Suspect]
     Active Substance: RIVAROXABAN
     Indication: SPLENIC VEIN OCCLUSION
  6. CONCOR [Concomitant]
     Active Substance: BISOPROLOL FUMARATE

REACTIONS (2)
  - Hyperkalaemia [Recovered/Resolved]
  - Gastrointestinal haemorrhage [Recovered/Resolved]

NARRATIVE: CASE EVENT DATE: 20200616
